FAERS Safety Report 8077821-X (Version None)
Quarter: 2012Q1

REPORT INFORMATION
  Report Type: 
  Country: None (occurrence: None)
  Receive Date: 20120127
  Receipt Date: 20120124
  Transmission Date: 20120608
  Serious: Yes (Hospitalization)
  Sender: FDA-Public Use
  Company Number: US-GILEAD-2012-0048893

PATIENT
  Age: 63 Year
  Sex: Male

DRUGS (3)
  1. TYVASO [Concomitant]
  2. ADCIRCA [Concomitant]
  3. LETAIRIS [Suspect]
     Indication: PRODUCT USED FOR UNKNOWN INDICATION
     Dosage: 5 MG, UNK
     Route: 048
     Dates: start: 20080415

REACTIONS (3)
  - CHOKING [None]
  - UNEVALUABLE EVENT [None]
  - PNEUMONIA [None]
